FAERS Safety Report 9464303 (Version 1)
Quarter: 2013Q3

REPORT INFORMATION
  Report Type: Report from Study
  Country: JP (occurrence: JP)
  Receive Date: 20130819
  Receipt Date: 20130819
  Transmission Date: 20140515
  Serious: Yes (Hospitalization)
  Sender: FDA-Public Use
  Company Number: JP-ABBOTT-13P-087-1132664-00

PATIENT
  Age: 45 Year
  Sex: Male

DRUGS (15)
  1. NORVIR [Suspect]
     Indication: HIV INFECTION
     Route: 048
     Dates: end: 20050424
  2. NORVIR [Suspect]
     Route: 048
     Dates: start: 20080714, end: 20110519
  3. NORVIR [Suspect]
     Route: 048
     Dates: start: 20110520
  4. LEXIVA [Suspect]
     Indication: HIV INFECTION
     Route: 048
     Dates: start: 20080714, end: 20080916
  5. LEXIVA [Suspect]
     Route: 048
     Dates: start: 20080917
  6. TRUVADA [Suspect]
     Indication: HIV INFECTION
     Dosage: 1 IU AXA
     Route: 048
     Dates: start: 20050524
  7. ISENTRESS [Suspect]
     Indication: HIV INFECTION
     Route: 048
     Dates: start: 20080714
  8. SPIRONOLACTONE [Concomitant]
     Indication: PRODUCT USED FOR UNKNOWN INDICATION
  9. AMINOLEBAN [Concomitant]
     Indication: PRODUCT USED FOR UNKNOWN INDICATION
  10. AMMONIUM GLYCYRRHIZATE [Concomitant]
     Indication: PRODUCT USED FOR UNKNOWN INDICATION
     Dates: start: 20110413
  11. MINOFIT [Concomitant]
     Indication: PRODUCT USED FOR UNKNOWN INDICATION
  12. LANSOPRAZOLE [Concomitant]
     Indication: PRODUCT USED FOR UNKNOWN INDICATION
  13. FACTOR VIII [Concomitant]
     Indication: PRODUCT USED FOR UNKNOWN INDICATION
  14. LACTULOSE [Concomitant]
     Indication: PRODUCT USED FOR UNKNOWN INDICATION
  15. FRUSEMIDE [Concomitant]
     Indication: PRODUCT USED FOR UNKNOWN INDICATION

REACTIONS (3)
  - Renal impairment [Not Recovered/Not Resolved]
  - Gastrointestinal haemorrhage [Not Recovered/Not Resolved]
  - Hyperuricaemia [Unknown]
